FAERS Safety Report 8194722 (Version 2)
Quarter: 2013Q4

REPORT INFORMATION
  Report Type: Spontaneous
  Country: US (occurrence: US)
  Receive Date: 20111024
  Receipt Date: 20131113
  Transmission Date: 20140711
  Serious: No
  Sender: FDA-Public Use
  Company Number: US-JNJFOC-20111006824

PATIENT
  Sex: Male

DRUGS (1)
  1. SANDOZ FENTANYL TRANSDERMAL SYSTEM [Suspect]
     Indication: PAIN
     Route: 062

REACTIONS (3)
  - Product packaging issue [Unknown]
  - Drug dispensing error [Recovered/Resolved]
  - Expired drug administered [Recovered/Resolved]
